FAERS Safety Report 4933012-X (Version None)
Quarter: 2006Q1

REPORT INFORMATION
  Report Type: 
  Country: None (occurrence: None)
  Receive Date: 20060301
  Receipt Date: 20060215
  Transmission Date: 20060701
  Serious: Yes (Death, Hospitalization)
  Sender: FDA-Public Use
  Company Number: A001-002-006789

PATIENT
  Age: 87 Year
  Sex: Female

DRUGS (18)
  1. ARICEPT [Suspect]
     Indication: DEMENTIA ALZHEIMER'S TYPE
     Dosage: ORAL
     Route: 048
     Dates: end: 20050808
  2. DIFLUCAN [Suspect]
     Dosage: ORAL
     Route: 048
     Dates: start: 20050701
  3. SEROQUEL [Suspect]
     Indication: SEDATION
     Dates: start: 20050728, end: 20050808
  4. RISPERDAL [Suspect]
  5. LEXAPRO [Suspect]
  6. NAPROSYN [Suspect]
  7. EXELON [Concomitant]
  8. ATARAX [Concomitant]
  9. LISINOPRIL [Concomitant]
  10. LOTREL [Concomitant]
  11. ACETAMINOPHEN [Concomitant]
  12. VISTANE [Concomitant]
  13. DEPAKOTE [Concomitant]
  14. DEPAKENE [Concomitant]
  15. COGENTIN [Concomitant]
  16. ATIVAN [Concomitant]
  17. CIPROFLOXACIN [Concomitant]
  18. PROBIOTICA [Concomitant]

REACTIONS (18)
  - ABNORMAL BEHAVIOUR [None]
  - AGGRESSION [None]
  - AMNESIA [None]
  - ANGER [None]
  - CARDIOPULMONARY FAILURE [None]
  - CONFUSIONAL STATE [None]
  - DELUSION [None]
  - DEMENTIA [None]
  - DEPRESSION [None]
  - FRUSTRATION [None]
  - HALLUCINATION [None]
  - HYPOTENSION [None]
  - MUSCLE SPASMS [None]
  - NOCTURIA [None]
  - OVERDOSE [None]
  - SCREAMING [None]
  - URINARY INCONTINENCE [None]
  - URINARY TRACT INFECTION [None]
